FAERS Safety Report 11631862 (Version 1)
Quarter: 2015Q4

REPORT INFORMATION
  Report Type: Spontaneous
  Country: GB (occurrence: GB)
  Receive Date: 20151015
  Receipt Date: 20151015
  Transmission Date: 20160304
  Serious: Yes (Disabling)
  Sender: FDA-Public Use
  Company Number: GB-ACCORD-034313

PATIENT
  Age: 45 Year
  Sex: Male
  Weight: 105 kg

DRUGS (5)
  1. MYCOPHENOLIC ACID. [Suspect]
     Active Substance: MYCOPHENOLIC ACID
     Indication: LIVER TRANSPLANT
     Dosage: ALSO RECEIVED REDUCED DOSE OF MYCOPHENOLATE 750 MG TWICE DAILY
     Route: 048
     Dates: start: 20080901, end: 20140502
  2. BISOPROLOL [Concomitant]
     Active Substance: BISOPROLOL
  3. AMITRIPTYLINE [Concomitant]
     Active Substance: AMITRIPTYLINE
  4. ACETYLSALICYLIC ACID [Concomitant]
     Active Substance: ASPIRIN
  5. NEORAL [Concomitant]
     Active Substance: CYCLOSPORINE

REACTIONS (2)
  - Hypogammaglobulinaemia [Not Recovered/Not Resolved]
  - Respiratory tract infection [Unknown]

NARRATIVE: CASE EVENT DATE: 201312
